FAERS Safety Report 6309616-9 (Version None)
Quarter: 2009Q3

REPORT INFORMATION
  Report Type: 
  Country: None (occurrence: None)
  Receive Date: 20090814
  Receipt Date: 20090811
  Transmission Date: 20100115
  Serious: Yes (Life-Threatening, Hospitalization)
  Sender: FDA-Public Use
  Company Number: IL-BRISTOL-MYERS SQUIBB COMPANY-14731202

PATIENT
  Age: 56 Year
  Sex: Male
  Weight: 90 kg

DRUGS (3)
  1. CETUXIMAB [Suspect]
     Indication: NON-SMALL CELL LUNG CANCER
     Dosage: RECENT INF-29JUL09; DRUG INTERRUPTED ON 05AUG09; 5MG/ML
     Route: 042
     Dates: start: 20090708
  2. CISPLATIN [Suspect]
     Indication: NON-SMALL CELL LUNG CANCER
     Dosage: RECENT INF-29JUL09; DRUG INTERRUPTED ON 05AUG09, TAKEN ON DAY1 OF 21.
     Route: 042
     Dates: start: 20090708
  3. GEMCITABINE [Suspect]
     Indication: NON-SMALL CELL LUNG CANCER
     Dosage: RECENT INF-29JUL09; DRUG INTERRUPTED ON 05AUG09, TAKEN ON DAY 1+8 OF 21DAY CYCLE.
     Route: 042
     Dates: start: 20090708

REACTIONS (1)
  - PULMONARY EMBOLISM [None]
